FAERS Safety Report 6502769-9 (Version None)
Quarter: 2009Q4

REPORT INFORMATION
  Report Type: 
  Country: None (occurrence: None)
  Receive Date: 20091127
  Receipt Date: 20090828
  Transmission Date: 20100525
  Serious: No
  Sender: FDA-Public Use
  Company Number: 001655

PATIENT

DRUGS (3)
  1. LACOSAMIDE [Suspect]
     Indication: CONVULSION
     Dosage: 50 MG BID ORAL, 100 MG BID ORAL, 150 MG BID ORAL
     Route: 048
  2. KEPPRA [Suspect]
     Indication: CONVULSION
  3. CARBATROL [Concomitant]

REACTIONS (2)
  - CONVULSION [None]
  - RASH PRURITIC [None]
